FAERS Safety Report 5383553-9 (Version None)
Quarter: 2007Q3

REPORT INFORMATION
  Report Type: 
  Country: None (occurrence: None)
  Receive Date: 20070706
  Receipt Date: 20070622
  Transmission Date: 20080115
  Serious: No
  Sender: FDA-Public Use
  Company Number: CHNY2007TW02256

PATIENT
  Sex: Male

DRUGS (1)
  1. NICOTINELL GUM (NCH) (NICOTINE) CHEWABLE GUM [Suspect]
     Indication: SMOKING CESSATION THERAPY
     Dosage: 2 MG, CHEWED
     Dates: start: 20070618

REACTIONS (1)
  - CHEST PAIN [None]
